FAERS Safety Report 8054941-7 (Version None)
Quarter: 2012Q1

REPORT INFORMATION
  Report Type: 
  Country: None (occurrence: None)
  Receive Date: 20120119
  Receipt Date: 20120109
  Transmission Date: 20120608
  Serious: Yes (Hospitalization)
  Sender: FDA-Public Use
  Company Number: US-ELI_LILLY_AND_COMPANY-US201201002999

PATIENT
  Sex: Female

DRUGS (5)
  1. METOPROLOL TARTRATE [Concomitant]
  2. SINGULAIR [Concomitant]
  3. LEVOXYL [Concomitant]
  4. CYMBALTA [Suspect]
     Indication: ANXIETY
  5. NEURONTIN [Concomitant]

REACTIONS (2)
  - PROCEDURAL HAEMORRHAGE [None]
  - HYSTERECTOMY [None]
